FAERS Safety Report 4366253-3 (Version None)
Quarter: 2004Q2

REPORT INFORMATION
  Report Type: 
  Country: None (occurrence: None)
  Receive Date: 20040526
  Receipt Date: 20040526
  Transmission Date: 20050107
  Serious: Yes (Hospitalization)
  Sender: FDA-Public Use
  Company Number: None

PATIENT
  Sex: Female
  Weight: 82.5547 kg

DRUGS (10)
  1. VORICONAZOLE 400 MG PFIZER [Suspect]
     Indication: FEBRILE NEUTROPENIA
     Dosage: 400 MG Q12H ORAL
     Route: 048
     Dates: start: 20030619, end: 20030619
  2. VORICONAZOLE 200 MG PFIZER [Suspect]
     Indication: FEBRILE NEUTROPENIA
     Dosage: 200 MG Q12H ORAL
     Route: 048
     Dates: start: 20030620, end: 20030625
  3. FUROSEMIDE [Concomitant]
  4. IMIPENEM-CILASTATIN [Concomitant]
  5. LOPERAMIDE HCL [Concomitant]
  6. PANTOPRAZOLE [Concomitant]
  7. DIPHENHYDRAMINE HCL [Concomitant]
  8. SARGRAMOSTIM [Concomitant]
  9. VANCOMYCIN [Concomitant]
  10. ACYCLOVIR [Concomitant]

REACTIONS (1)
  - LIVER FUNCTION TEST ABNORMAL [None]
